FAERS Safety Report 16332216 (Version 2)
Quarter: 2019Q2

REPORT INFORMATION
  Report Type: Spontaneous
  Country: DE (occurrence: DE)
  Receive Date: 20190520
  Receipt Date: 20190607
  Transmission Date: 20190711
  Serious: Yes (Hospitalization, Disabling)
  Sender: FDA-Public Use
  Company Number: DE-CELGENEUS-DEU-20190502468

PATIENT
  Age: 67 Year
  Sex: Male

DRUGS (1)
  1. REVLIMID [Suspect]
     Active Substance: LENALIDOMIDE
     Indication: MANTLE CELL LYMPHOMA
     Dosage: DOSE NOT PROVIDED
     Route: 048
     Dates: start: 201802, end: 201811

REACTIONS (1)
  - Central nervous system lymphoma [Not Recovered/Not Resolved]

NARRATIVE: CASE EVENT DATE: 201901
